FAERS Safety Report 20607379 (Version 1)
Quarter: 2022Q1

REPORT INFORMATION
  Report Type: Spontaneous
  Country: US (occurrence: None)
  Receive Date: 20220316
  Receipt Date: 20220316
  Transmission Date: 20220424
  Serious: Yes (Death)
  Sender: FDA-Public Use
  Company Number: None

PATIENT
  Age: 82 Year
  Sex: Male

DRUGS (2)
  1. MYCOPHENOLATE MOFETIL [Suspect]
     Active Substance: MYCOPHENOLATE MOFETIL
     Indication: Renal transplant
     Dosage: 500MG TABLET - TAKE 2 TABLETS BY MOUTH EVERY MORNING AND 1 TABLET EVERY EVENING.?
     Route: 048
     Dates: start: 201705, end: 20220308
  2. TACROLIMUS [Suspect]
     Active Substance: TACROLIMUS
     Indication: Renal transplant
     Dosage: 0.5MG CAPSULE- TAKE 2 CAPSULES BY MOUTH EVERY MORNING AND 1 CAPSULE EVERY EVENING?
     Route: 048
     Dates: start: 201705, end: 20220308

REACTIONS (1)
  - Death [None]

NARRATIVE: CASE EVENT DATE: 20220308
